FAERS Safety Report 7393029-5 (Version None)
Quarter: 2011Q2

REPORT INFORMATION
  Report Type: 
  Country: None (occurrence: None)
  Receive Date: 20110404
  Receipt Date: 20110324
  Transmission Date: 20111010
  Serious: Yes (Other)
  Sender: FDA-Public Use
  Company Number: JP-ASTRAZENECA-2011SE14225

PATIENT
  Age: 22711 Day
  Sex: Male
  Weight: 88 kg

DRUGS (4)
  1. URALYT [Suspect]
     Indication: HYPERURICAEMIA
     Route: 048
     Dates: start: 20090423, end: 20110309
  2. OMEPRAL [Suspect]
     Indication: REFLUX OESOPHAGITIS
     Route: 048
     Dates: start: 20101202, end: 20110309
  3. AMLODIN OD [Suspect]
     Indication: HYPERTENSION
     Route: 048
     Dates: start: 20090813
  4. ZYLORIC [Suspect]
     Indication: HYPERURICAEMIA
     Route: 048
     Dates: start: 20080604, end: 20110309

REACTIONS (2)
  - PLATELET COUNT DECREASED [None]
  - WHITE BLOOD CELL COUNT DECREASED [None]
